FAERS Safety Report 6828455-3 (Version None)
Quarter: 2010Q3

REPORT INFORMATION
  Report Type: 
  Country: None (occurrence: None)
  Receive Date: 20100709
  Receipt Date: 20070210
  Transmission Date: 20110219
  Serious: No
  Sender: FDA-Public Use
  Company Number: US-PFIZER INC-2007011839

PATIENT
  Sex: Male
  Weight: 92.99 kg

DRUGS (2)
  1. CHANTIX [Suspect]
     Indication: SMOKING CESSATION THERAPY
     Route: 048
     Dates: start: 20070205
  2. CYMBALTA [Concomitant]

REACTIONS (3)
  - MUSCLE SPASMS [None]
  - PAIN [None]
  - WITHDRAWAL SYNDROME [None]
